FAERS Safety Report 7933317-4 (Version None)
Quarter: 2011Q4

REPORT INFORMATION
  Report Type: 
  Country: None (occurrence: None)
  Receive Date: 20111121
  Receipt Date: 20111121
  Transmission Date: 20120403
  Serious: Yes (Disabling)
  Sender: FDA-Public Use
  Company Number: None

PATIENT
  Age: 44 Year
  Sex: Male
  Weight: 77.1115 kg

DRUGS (1)
  1. FANAPT 2 MG NOVARTIS [Suspect]
     Indication: BIPOLAR DISORDER
     Dosage: 2 MG TWICE A DAY ORAL
     Route: 048
     Dates: start: 20110812, end: 20110825

REACTIONS (21)
  - DRY SKIN [None]
  - DYSKINESIA [None]
  - EJACULATION DISORDER [None]
  - THIRST [None]
  - ANORGASMIA [None]
  - CONSTIPATION [None]
  - DIZZINESS [None]
  - HUNGER [None]
  - THINKING ABNORMAL [None]
  - PROSTATITIS [None]
  - TARDIVE DYSKINESIA [None]
  - SKIN WRINKLING [None]
  - VERTIGO [None]
  - DYSPHONIA [None]
  - MUSCLE TWITCHING [None]
  - TINNITUS [None]
  - HYPOAESTHESIA [None]
  - ERECTION INCREASED [None]
  - DRY EYE [None]
  - SKIN DISCOLOURATION [None]
  - DISTURBANCE IN ATTENTION [None]
